FAERS Safety Report 21213873 (Version 4)
Quarter: 2022Q4

REPORT INFORMATION
  Report Type: Report from Study
  Country: CA (occurrence: CA)
  Receive Date: 20220816
  Receipt Date: 20221103
  Transmission Date: 20230113
  Serious: Yes (Hospitalization)
  Sender: FDA-Public Use
  Company Number: CA-JNJFOC-20220524719

PATIENT
  Age: 57 Year
  Sex: Female
  Weight: 107 kg

DRUGS (5)
  1. STELARA [Suspect]
     Active Substance: USTEKINUMAB
     Indication: Crohn^s disease
     Dosage: ON 11-MAY-2022, THE PATIENT RECEIVED 4TH INJECTION. PARTIAL HARVEY-BRADSHAW COMPLETED. EXPIRY DATE-3
     Route: 058
     Dates: start: 20211122
  2. STELARA [Suspect]
     Active Substance: USTEKINUMAB
     Dosage: ON 03-SEP-2022, THE PATIENT RECEIVED 7TH USTEKINUMAB INJECTION AT DOSE OF 90 MG AND PARTIAL HARVEY-B
     Route: 058
  3. MODERNA COVID-19 VACCINE [Concomitant]
     Active Substance: ELASOMERAN
     Indication: COVID-19 prophylaxis
     Dosage: THREE VACCINE
     Route: 065
  4. MESALAMINE [Concomitant]
     Active Substance: MESALAMINE
     Indication: Product used for unknown indication
     Route: 065
  5. FOLIC ACID [Concomitant]
     Active Substance: FOLIC ACID
     Indication: Product used for unknown indication
     Route: 065

REACTIONS (4)
  - Abdominal abscess [Recovering/Resolving]
  - Crohn^s disease [Unknown]
  - Electrolyte imbalance [Unknown]
  - Blood potassium abnormal [Unknown]

NARRATIVE: CASE EVENT DATE: 20220101
